FAERS Safety Report 7631026-2 (Version None)
Quarter: 2011Q3

REPORT INFORMATION
  Report Type: 
  Country: None (occurrence: None)
  Receive Date: 20110725
  Receipt Date: 20110715
  Transmission Date: 20111222
  Serious: No
  Sender: FDA-Public Use
  Company Number: US-BIOGENIDEC-2011BI026434

PATIENT
  Sex: Male

DRUGS (1)
  1. AVONEX [Suspect]
     Indication: MULTIPLE SCLEROSIS
     Route: 030
     Dates: start: 19970501

REACTIONS (5)
  - DRUG DEPENDENCE [None]
  - ARTHRALGIA [None]
  - NECK PAIN [None]
  - BACK PAIN [None]
  - MUSCULOSKELETAL PAIN [None]
